FAERS Safety Report 15383797 (Version 3)
Quarter: 2018Q4

REPORT INFORMATION
  Report Type: Not Available
  Country: US (occurrence: US)
  Receive Date: 20180913
  Receipt Date: 20181220
  Transmission Date: 20190204
  Serious: No
  Sender: FDA-Public Use
  Company Number: US-NEUROCRINE BIOSCIENCES INC.-2018NBI02610

PATIENT
  Sex: Female

DRUGS (3)
  1. INGREZZA [Suspect]
     Active Substance: VALBENAZINE
     Route: 048
     Dates: start: 20170711
  2. INGREZZA [Suspect]
     Active Substance: VALBENAZINE
     Indication: PRODUCT USED FOR UNKNOWN INDICATION
     Route: 048
     Dates: start: 20170703, end: 20170710
  3. INGREZZA [Suspect]
     Active Substance: VALBENAZINE
     Dosage: 40 MG IN THE MORNING AND 80 MG AT NIGHT
     Route: 048

REACTIONS (5)
  - Balance disorder [Recovering/Resolving]
  - Tardive dyskinesia [Recovering/Resolving]
  - Drug effect decreased [None]
  - Fatigue [Recovering/Resolving]
  - Dysarthria [Recovering/Resolving]
